FAERS Safety Report 5361863-9 (Version None)
Quarter: 2007Q2

REPORT INFORMATION
  Report Type: 
  Country: None (occurrence: None)
  Receive Date: 20070612
  Receipt Date: 20070529
  Transmission Date: 20071010
  Serious: Yes (Death, Hospitalization)
  Sender: FDA-Public Use
  Company Number: 2007000857

PATIENT
  Age: 78 Year
  Sex: Male

DRUGS (21)
  1. ERLOTINIB [Suspect]
     Indication: PANCREATIC CARCINOMA METASTATIC
     Dosage: 50 MG (QD), ORAL
     Route: 048
     Dates: start: 20060315, end: 20070426
  2. BEVACIZUMAB                        (INJECTION FOR INFUSION) [Suspect]
     Indication: PANCREATIC CARCINOMA METASTATIC
     Dosage: Q2W, INTRAVENOUS
     Route: 042
     Dates: start: 20060315, end: 20070426
  3. GEMCITABINE HCL [Suspect]
     Indication: PANCREATIC CARCINOMA METASTATIC
     Dosage: 1000 MG/WEEK (QW), INTRAVENOUS
     Route: 042
     Dates: start: 20060315, end: 20070426
  4. PANTOPRAZOLE SODIUM [Concomitant]
  5. METOPROLOL SUCCINATE [Concomitant]
  6. PLAVIX [Concomitant]
  7. SYNTHROID [Concomitant]
  8. LOPERAMIDE HYDROCHLORIDE [Concomitant]
  9. COTAZYM (PANCREATIN) [Concomitant]
  10. VITAMIN B12 (CYANCOBALAMIN) [Concomitant]
  11. VITAMIN D [Concomitant]
  12. CENTRUM SILVER [Concomitant]
  13. MAGNESIUM SULFATE [Concomitant]
  14. BACITRACN [Concomitant]
  15. MAGNESIUM SULFATE [Concomitant]
  16. POTASSIUM CHLORIDE [Concomitant]
  17. ATIVAN [Concomitant]
  18. LOPERAMIDE HYDROCHLORIDE [Concomitant]
  19. CHOLESTYRAMINE [Concomitant]
  20. LOVENOX [Concomitant]
  21. MORPHINE [Concomitant]

REACTIONS (4)
  - INTESTINAL INFARCTION [None]
  - INTESTINAL OBSTRUCTION [None]
  - MALABSORPTION [None]
  - WEIGHT DECREASED [None]
